FAERS Safety Report 21701005 (Version 1)
Quarter: 2022Q4

REPORT INFORMATION
  Report Type: Spontaneous
  Country: US (occurrence: None)
  Receive Date: 20221207
  Receipt Date: 20221207
  Transmission Date: 20230113
  Serious: No
  Sender: FDA-Public Use
  Company Number: None

PATIENT
  Sex: Male

DRUGS (1)
  1. STELARA [Suspect]
     Active Substance: USTEKINUMAB
     Indication: Inflammatory bowel disease
     Dosage: OTHER QUANTITY : 90MG/1ML;?OTHER FREQUENCY : 1 EVERY 6 WEEKS;?
     Route: 058
     Dates: start: 20220831

REACTIONS (1)
  - Pain [None]
